FAERS Safety Report 4921337-3 (Version None)
Quarter: 2006Q1

REPORT INFORMATION
  Report Type: 
  Country: None (occurrence: None)
  Receive Date: 20060224
  Receipt Date: 20060213
  Transmission Date: 20060701
  Serious: Yes (Other)
  Sender: FDA-Public Use
  Company Number: DE-JNJFOC-20060103600

PATIENT
  Sex: Female

DRUGS (11)
  1. TOPAMAX [Suspect]
     Indication: TREMOR
     Route: 048
  2. SOLVEX [Suspect]
     Route: 048
  3. SOLVEX [Suspect]
     Route: 048
  4. SOLVEX [Suspect]
     Route: 048
  5. SOLVEX [Suspect]
     Dosage: 4MG IN THE MORNING, 2MG IN THE AFTERNOON
     Route: 048
  6. SOLVEX [Suspect]
     Route: 048
  7. PROPRANOLOL [Suspect]
     Route: 048
  8. PROPRANOLOL [Suspect]
     Indication: TREMOR
     Route: 048
  9. ZOFENOPRIL [Concomitant]
     Route: 065
  10. INDOMETHACIN [Concomitant]
     Indication: SPINAL COLUMN STENOSIS
     Route: 048
  11. INDOMETHACIN [Concomitant]
     Indication: PAIN
     Dosage: 25MG IN THE MORNING, 50MG IN THE EVENING.
     Route: 048

REACTIONS (3)
  - ERYTHEMA [None]
  - POOR PERIPHERAL CIRCULATION [None]
  - SKIN NECROSIS [None]
